FAERS Safety Report 7888366-1 (Version None)
Quarter: 2011Q4

REPORT INFORMATION
  Report Type: 
  Country: None (occurrence: None)
  Receive Date: 20111103
  Receipt Date: 20111031
  Transmission Date: 20120403
  Serious: Yes (Other)
  Sender: FDA-Public Use
  Company Number: JP-PFIZER INC-2011266879

PATIENT
  Age: 80 Year
  Sex: Male

DRUGS (2)
  1. INDERAL [Suspect]
     Indication: HYPERTENSION
     Route: 048
  2. INDERAL [Suspect]
     Indication: AORTIC ANEURYSM

REACTIONS (4)
  - DEHYDRATION [None]
  - RENAL FAILURE [None]
  - NEPHRITIS [None]
  - BRADYCARDIA [None]
